FAERS Safety Report 10085939 (Version 1)
Quarter: 2014Q2

REPORT INFORMATION
  Report Type: Spontaneous
  Country: US (occurrence: None)
  Receive Date: 20140402
  Receipt Date: 20140402
  Transmission Date: 20141212
  Serious: No
  Sender: FDA-Public Use
  Company Number: GAM-109-14-US

PATIENT
  Age: 65 Year
  Sex: Male

DRUGS (7)
  1. OCTAGAM 5% [Suspect]
     Indication: POLYNEUROPATHY IDIOPATHIC PROGRESSIVE
     Route: 042
     Dates: start: 20140218, end: 20140219
  2. LISINOPRIL [Concomitant]
  3. VITAMIN D [Concomitant]
  4. ACETAMINOPHEN AND CODEINE [Concomitant]
  5. ACETYLSALICYLIC ACID [Concomitant]
  6. ACETAMINOPHEN [Concomitant]
  7. DIPHENHYDRAMINE [Concomitant]

REACTIONS (2)
  - Cerebrovascular accident [None]
  - Pulmonary embolism [None]
